FAERS Safety Report 5397093-4 (Version None)
Quarter: 2007Q3

REPORT INFORMATION
  Report Type: 
  Country: None (occurrence: None)
  Receive Date: 20070725
  Receipt Date: 20070713
  Transmission Date: 20080115
  Serious: Yes (Other)
  Sender: FDA-Public Use
  Company Number: US-PFIZER INC-2007024327

PATIENT
  Sex: Male
  Weight: 79.4 kg

DRUGS (6)
  1. CHANTIX [Suspect]
     Indication: SMOKING CESSATION THERAPY
  2. CADUET [Suspect]
     Indication: BLOOD PRESSURE
  3. CADUET [Suspect]
     Indication: BLOOD CHOLESTEROL
  4. PLAVIX [Suspect]
     Indication: CAROTID ARTERY OCCLUSION
  5. PLETAL [Suspect]
     Indication: POOR PERIPHERAL CIRCULATION
  6. TOPROL-XL [Suspect]

REACTIONS (4)
  - CAROTID ARTERY OCCLUSION [None]
  - LUNG NEOPLASM MALIGNANT [None]
  - NAUSEA [None]
  - POOR PERIPHERAL CIRCULATION [None]
